FAERS Safety Report 9908554 (Version 2)
Quarter: 2014Q1

REPORT INFORMATION
  Report Type: Spontaneous
  Country: US (occurrence: US)
  Receive Date: 20140219
  Receipt Date: 20140219
  Transmission Date: 20141002
  Serious: Yes (Other)
  Sender: FDA-Public Use
  Company Number: US-GE HEALTHCARE MEDICAL DIAGNOSTICS-OSCN-PR-0805S-0308

PATIENT
  Sex: Male
  Weight: 81 kg

DRUGS (12)
  1. OMNISCAN [Suspect]
     Indication: PRODUCT USED FOR UNKNOWN INDICATION
     Route: 042
     Dates: start: 20010522, end: 20010522
  2. OMNISCAN [Suspect]
     Indication: RENAL CANCER
     Route: 042
     Dates: start: 20020710, end: 20020710
  3. OMNISCAN [Suspect]
     Indication: RENAL CYST
     Route: 042
     Dates: start: 20030303, end: 20030303
  4. OMNISCAN [Suspect]
     Dates: start: 20030508, end: 20030508
  5. OMNISCAN [Suspect]
     Dates: start: 20031123, end: 20031123
  6. OMNISCAN [Suspect]
     Route: 042
     Dates: start: 20050302, end: 20050302
  7. PHOSLO [Concomitant]
  8. EPOGEN [Concomitant]
  9. IRON [Concomitant]
  10. TOPROL XL [Concomitant]
  11. LOTREL [Concomitant]
  12. COUMADIN [Concomitant]

REACTIONS (1)
  - Nephrogenic systemic fibrosis [Not Recovered/Not Resolved]
